FAERS Safety Report 6694110-6 (Version None)
Quarter: 2010Q2

REPORT INFORMATION
  Report Type: 
  Country: None (occurrence: None)
  Receive Date: 20100423
  Receipt Date: 20100419
  Transmission Date: 20101027
  Serious: Yes (Death, Hospitalization)
  Sender: FDA-Public Use
  Company Number: BR-ROCHE-670215

PATIENT
  Sex: Male
  Weight: 73.4 kg

DRUGS (10)
  1. METHOXY POLYETHYLENE GLYCOL-EPOETIN BETA [Suspect]
     Dosage: FORM: PRE FILLED SYRINGES. LAST DOSE PRIOR TO SAE: 30 NOVEMBER 2009.
     Route: 058
     Dates: start: 20090717, end: 20091206
  2. ENALAPRIL MALEATE [Concomitant]
     Dates: start: 20081201, end: 20091117
  3. LOSARTAN POTASSIUM [Concomitant]
     Dates: start: 20071001, end: 20091117
  4. NIFEDIPINE [Concomitant]
     Dates: start: 20090701, end: 20091206
  5. FOLIC ACID [Concomitant]
     Dates: start: 20090701, end: 20091206
  6. VITAMIN B COMPLEX CAP [Concomitant]
     Dates: start: 20090701, end: 20091206
  7. HYDROCHLOROTHIAZIDE [Concomitant]
     Dates: start: 20090929, end: 20091206
  8. FUROSEMIDE [Concomitant]
     Dates: start: 20091029, end: 20091206
  9. INSULIN [Concomitant]
     Dates: start: 20090801
  10. INSULIN [Concomitant]
     Dates: start: 20091029, end: 20091206

REACTIONS (2)
  - ACUTE PULMONARY OEDEMA [None]
  - RENAL IMPAIRMENT [None]
